FAERS Safety Report 6904098-8 (Version None)
Quarter: 2010Q3

REPORT INFORMATION
  Report Type: 
  Country: None (occurrence: None)
  Receive Date: 20100804
  Receipt Date: 20090319
  Transmission Date: 20110219
  Serious: No
  Sender: FDA-Public Use
  Company Number: US-PFIZER INC-2009161917

PATIENT
  Sex: Female
  Weight: 63.5 kg

DRUGS (2)
  1. LYRICA [Suspect]
     Indication: PARAESTHESIA
     Dosage: 50 MG, 1X/DAY
  2. LYRICA [Suspect]
     Indication: BACK PAIN

REACTIONS (7)
  - BACK PAIN [None]
  - DISTURBANCE IN ATTENTION [None]
  - DRUG INTOLERANCE [None]
  - FEELING ABNORMAL [None]
  - MUSCLE SPASMS [None]
  - SEDATION [None]
  - VISION BLURRED [None]
